FAERS Safety Report 13783221 (Version 1)
Quarter: 2017Q3

REPORT INFORMATION
  Report Type: Spontaneous
  Country: FR (occurrence: FR)
  Receive Date: 20170724
  Receipt Date: 20170724
  Transmission Date: 20171127
  Serious: Yes (Other)
  Sender: FDA-Public Use
  Company Number: FR-BAYER-2017-140072

PATIENT
  Age: 31 Year
  Sex: Female

DRUGS (1)
  1. MIRENA [Suspect]
     Active Substance: LEVONORGESTREL
     Indication: CONTRACEPTION
     Dosage: 20 MCG/24HR, CONT
     Route: 015
     Dates: start: 20120229, end: 20170303

REACTIONS (7)
  - Vulvovaginal dryness [Unknown]
  - Acne [Not Recovered/Not Resolved]
  - Mood swings [Unknown]
  - Abortion spontaneous [Not Recovered/Not Resolved]
  - Hypertrichosis [Not Recovered/Not Resolved]
  - Migraine [Unknown]
  - Fungal infection [Unknown]

NARRATIVE: CASE EVENT DATE: 2012
